FAERS Safety Report 10168413 (Version 1)
Quarter: 2014Q2

REPORT INFORMATION
  Report Type: Spontaneous
  Country: US (occurrence: US)
  Receive Date: 20140513
  Receipt Date: 20140513
  Transmission Date: 20141212
  Serious: No
  Sender: FDA-Public Use
  Company Number: US-009507513-1405USA005192

PATIENT
  Sex: Male

DRUGS (1)
  1. GRASTEK [Suspect]
     Route: 060

REACTIONS (3)
  - Enlarged uvula [Recovered/Resolved]
  - Pharyngeal hypoaesthesia [Recovered/Resolved]
  - Tongue pruritus [Recovered/Resolved]
